FAERS Safety Report 22120130 (Version 1)
Quarter: 2023Q1

REPORT INFORMATION
  Report Type: Spontaneous
  Country: US (occurrence: None)
  Receive Date: 20230321
  Receipt Date: 20230321
  Transmission Date: 20230418
  Serious: No
  Sender: FDA-Public Use
  Company Number: US-ROCHE-3256432

PATIENT
  Sex: Male

DRUGS (9)
  1. ERIVEDGE [Suspect]
     Active Substance: VISMODEGIB
     Indication: Basal cell carcinoma
     Dosage: 1 CAPSULE SWALLOWING WHOLE, DO NOT OPEN OR CRUSH.
     Route: 048
     Dates: start: 20221213
  2. ACETAMINOPHEN [Concomitant]
     Active Substance: ACETAMINOPHEN
  3. AMIODARONE HYDROCHLORIDE [Concomitant]
     Active Substance: AMIODARONE HYDROCHLORIDE
  4. AMLODIPINE BESYLATE [Concomitant]
     Active Substance: AMLODIPINE BESYLATE
  5. BUMETANIDE [Concomitant]
     Active Substance: BUMETANIDE
  6. FERROUS SULFATE [Concomitant]
     Active Substance: FERROUS SULFATE
  7. FINASTERIDE [Concomitant]
     Active Substance: FINASTERIDE
  8. METOPROLOL [Concomitant]
     Active Substance: METOPROLOL
  9. OXYCODONE HYDROCHLORIDE [Concomitant]
     Active Substance: OXYCODONE HYDROCHLORIDE

REACTIONS (2)
  - COVID-19 [Not Recovered/Not Resolved]
  - Nasopharyngitis [Not Recovered/Not Resolved]
